FAERS Safety Report 8064127-8 (Version None)
Quarter: 2012Q1

REPORT INFORMATION
  Report Type: 
  Country: None (occurrence: None)
  Receive Date: 20120123
  Receipt Date: 20111031
  Transmission Date: 20120608
  Serious: Yes (Hospitalization)
  Sender: FDA-Public Use
  Company Number: JP-GLAXOSMITHKLINE-B0759988A

PATIENT
  Sex: Female

DRUGS (7)
  1. CYMBALTA [Concomitant]
     Dosage: 20MG PER DAY
     Route: 048
     Dates: start: 20110910, end: 20110927
  2. ALPRAZOLAM [Concomitant]
     Indication: ANXIETY
     Dosage: .8MG PER DAY
     Route: 048
     Dates: start: 20110917, end: 20111004
  3. ZYPREXA [Concomitant]
     Indication: MOOD ALTERED
     Dosage: 2.5MG PER DAY
     Route: 048
     Dates: start: 20110927, end: 20111004
  4. LAMICTAL [Suspect]
     Dosage: 50MG PER DAY
     Route: 048
     Dates: start: 20110917, end: 20111001
  5. LAMICTAL [Suspect]
     Indication: BIPOLAR DISORDER
     Dosage: 25MG PER DAY
     Route: 048
     Dates: start: 20110910, end: 20110916
  6. LENDORMIN [Concomitant]
     Indication: INSOMNIA
     Dosage: .25MG PER DAY
     Route: 048
     Dates: start: 20110917, end: 20111004
  7. MOTILIUM [Concomitant]
     Indication: PROPHYLAXIS OF NAUSEA AND VOMITING
     Dosage: 30MG PER DAY
     Route: 048
     Dates: start: 20110910, end: 20110912

REACTIONS (3)
  - SCAR [None]
  - RASH [None]
  - PRURITUS [None]
